FAERS Safety Report 4786610-0 (Version None)
Quarter: 2005Q3

REPORT INFORMATION
  Report Type: 
  Country: None (occurrence: None)
  Receive Date: 20050927
  Receipt Date: 20050715
  Transmission Date: 20060218
  Serious: No
  Sender: FDA-Public Use
  Company Number: USA0506101507

PATIENT
  Age: 29 Year
  Sex: Female
  Weight: 100 kg

DRUGS (1)
  1. STRATTERA [Suspect]
     Indication: ENERGY INCREASED
     Dosage: 40 MG/1 DAY
     Dates: start: 20050623, end: 20050626

REACTIONS (5)
  - DIZZINESS [None]
  - FATIGUE [None]
  - HEADACHE [None]
  - LETHARGY [None]
  - UNEVALUABLE EVENT [None]
